FAERS Safety Report 5772034-6 (Version None)
Quarter: 2008Q2

REPORT INFORMATION
  Report Type: 
  Country: None (occurrence: None)
  Receive Date: 20080612
  Receipt Date: 20080612
  Transmission Date: 20081010
  Serious: No
  Sender: FDA-Public Use
  Company Number: None

PATIENT
  Age: 74 Year
  Sex: Female
  Weight: 53.5244 kg

DRUGS (4)
  1. DIGOXIN [Suspect]
     Indication: CARDIAC FAILURE CONGESTIVE
     Dosage: 1 TABLET 1XDAY PO
     Route: 048
     Dates: start: 20060701
  2. DIGOXIN [Suspect]
     Indication: CARDIOMYOPATHY
     Dosage: 1 TABLET 1XDAY PO
     Route: 048
     Dates: start: 20060701
  3. LANOXIN [Suspect]
     Indication: CARDIAC FAILURE CONGESTIVE
     Dosage: 1 TABLET 1XDAY PO
     Route: 048
     Dates: start: 20060701
  4. LANOXIN [Suspect]
     Indication: CARDIOMYOPATHY
     Dosage: 1 TABLET 1XDAY PO
     Route: 048
     Dates: start: 20060701

REACTIONS (7)
  - ALTERED VISUAL DEPTH PERCEPTION [None]
  - ANOREXIA [None]
  - BALANCE DISORDER [None]
  - DEAFNESS [None]
  - HEART RATE ABNORMAL [None]
  - VISUAL DISTURBANCE [None]
  - WEIGHT DECREASED [None]
